FAERS Safety Report 15980053 (Version 1)
Quarter: 2019Q1

REPORT INFORMATION
  Report Type: Spontaneous
  Country: US (occurrence: US)
  Receive Date: 20190219
  Receipt Date: 20190219
  Transmission Date: 20190418
  Serious: No
  Sender: FDA-Public Use
  Company Number: US-HTU-2018US017363

PATIENT
  Sex: Male

DRUGS (4)
  1. VALCHLOR [Suspect]
     Active Substance: MECHLORETHAMINE
     Indication: MYCOSIS FUNGOIDES
     Dosage: UNK
     Route: 061
     Dates: start: 20180417
  2. VALCHLOR [Suspect]
     Active Substance: MECHLORETHAMINE
     Dosage: 2-3 TIMES/WEEK
     Route: 061
  3. MUSTARD OIL [Concomitant]
  4. VALCHLOR [Suspect]
     Active Substance: MECHLORETHAMINE
     Dosage: UNK, QOD
     Route: 061

REACTIONS (4)
  - Adverse event [Unknown]
  - Haemorrhage [Unknown]
  - Pruritus [Unknown]
  - Erythema [Unknown]
